FAERS Safety Report 9455579 (Version 2)
Quarter: 2013Q3

REPORT INFORMATION
  Report Type: Spontaneous
  Country: IT (occurrence: IT)
  Receive Date: 20130813
  Receipt Date: 20130823
  Transmission Date: 20140515
  Serious: Yes (Hospitalization)
  Sender: FDA-Public Use
  Company Number: IT-PFIZER INC-2013232518

PATIENT
  Age: 42 Year
  Sex: Female

DRUGS (1)
  1. XANAX [Suspect]
     Dosage: 80 DROPS, TOTAL
     Route: 048
     Dates: start: 20130610, end: 20130610

REACTIONS (3)
  - Overdose [Unknown]
  - Drug abuse [Unknown]
  - Vertigo [Unknown]
